FAERS Safety Report 4405990-9 (Version None)
Quarter: 2004Q3

REPORT INFORMATION
  Report Type: 
  Country: None (occurrence: None)
  Receive Date: 20040723
  Receipt Date: 20040305
  Transmission Date: 20050211
  Serious: No
  Sender: FDA-Public Use
  Company Number: US-GLAXOSMITHKLINE-A0501458A

PATIENT
  Age: 68 Year
  Sex: Female

DRUGS (9)
  1. AVANDIA [Suspect]
     Dosage: 4MG PER DAY
     Route: 048
     Dates: start: 20040304
  2. HUMALOG [Concomitant]
  3. LANTUS [Concomitant]
  4. SYNTHROID [Concomitant]
  5. HYZAAR [Concomitant]
  6. MULTI-VITAMIN [Concomitant]
  7. B VITAMIN COMPLEX [Concomitant]
  8. VITAMIN E [Concomitant]
  9. MAGNESIUM [Concomitant]

REACTIONS (3)
  - CHEST DISCOMFORT [None]
  - CHEST PAIN [None]
  - COUGH [None]
